FAERS Safety Report 8234895-0 (Version None)
Quarter: 2012Q1

REPORT INFORMATION
  Report Type: 
  Country: None (occurrence: None)
  Receive Date: 20120326
  Receipt Date: 20120319
  Transmission Date: 20120608
  Serious: Yes (Other)
  Sender: FDA-Public Use
  Company Number: HU-PFIZER INC-2012073433

PATIENT
  Age: 53 Year
  Sex: Female
  Weight: 80 kg

DRUGS (1)
  1. XALATAN [Suspect]
     Dosage: 0.05 MG, 1X/DAY AT NIGHT
     Dates: start: 20111201

REACTIONS (1)
  - VISUAL ACUITY REDUCED [None]
